FAERS Safety Report 5830600-3 (Version None)
Quarter: 2008Q3

REPORT INFORMATION
  Report Type: 
  Country: None (occurrence: None)
  Receive Date: 20080801
  Receipt Date: 20070808
  Transmission Date: 20090109
  Serious: No
  Sender: FDA-Public Use
  Company Number: US-BRISTOL-MYERS SQUIBB COMPANY-13872619

PATIENT
  Age: 66 Year
  Sex: Female

DRUGS (2)
  1. COUMADIN [Suspect]
  2. VERAPMIL [Concomitant]

REACTIONS (3)
  - CONTUSION [None]
  - FLUID RETENTION [None]
  - WEIGHT INCREASED [None]
